FAERS Safety Report 15044106 (Version 1)
Quarter: 2018Q2

REPORT INFORMATION
  Report Type: Spontaneous
  Country: CA (occurrence: CA)
  Receive Date: 20180621
  Receipt Date: 20180621
  Transmission Date: 20180711
  Serious: Yes (Other)
  Sender: FDA-Public Use
  Company Number: CA-PURDUE PHARMA-CAN-2018-0008755

PATIENT
  Age: 11 Year
  Sex: Male
  Weight: 26.76 kg

DRUGS (1)
  1. BIPHENTIN [Suspect]
     Active Substance: METHYLPHENIDATE
     Indication: PRODUCT USED FOR UNKNOWN INDICATION
     Dosage: 40.0 MG, DAILY
     Route: 048

REACTIONS (5)
  - Weight decreased [Recovering/Resolving]
  - Poor quality sleep [Recovering/Resolving]
  - Hallucination [Recovering/Resolving]
  - Sleep terror [Recovering/Resolving]
  - Tic [Recovering/Resolving]
